FAERS Safety Report 22352458 (Version 1)
Quarter: 2023Q2

REPORT INFORMATION
  Report Type: Spontaneous
  Country: CN (occurrence: CN)
  Receive Date: 20230522
  Receipt Date: 20230522
  Transmission Date: 20230722
  Serious: Yes (Hospitalization)
  Sender: FDA-Public Use
  Company Number: CN-BAYER-2023A071302

PATIENT
  Age: 67 Year
  Sex: Female

DRUGS (4)
  1. XARELTO [Suspect]
     Active Substance: RIVAROXABAN
     Indication: Product used for unknown indication
     Dosage: UNK
     Route: 048
  2. AMIVANTAMAB [Concomitant]
     Active Substance: AMIVANTAMAB
     Dosage: UNK
  3. LAZERTINIB [Concomitant]
     Active Substance: LAZERTINIB
     Dosage: UNK
  4. AXITINIB [Concomitant]
     Active Substance: AXITINIB
     Dosage: UNK

REACTIONS (4)
  - Pneumonitis [Not Recovered/Not Resolved]
  - Platelet count decreased [Not Recovered/Not Resolved]
  - Tumour haemorrhage [Not Recovered/Not Resolved]
  - Anaemia [Not Recovered/Not Resolved]

NARRATIVE: CASE EVENT DATE: 20230508
